FAERS Safety Report 19171338 (Version 2)
Quarter: 2021Q3

REPORT INFORMATION
  Report Type: Spontaneous
  Country: US (occurrence: US)
  Receive Date: 20210423
  Receipt Date: 20210924
  Transmission Date: 20211014
  Serious: No
  Sender: FDA-Public Use
  Company Number: US-SA-2021SA133696

PATIENT
  Age: 60 Year
  Sex: Male

DRUGS (2)
  1. DUPIXENT [Suspect]
     Active Substance: DUPILUMAB
     Dosage: 300 MG, QOW
     Route: 058
     Dates: start: 20210414
  2. DUPIXENT [Suspect]
     Active Substance: DUPILUMAB
     Indication: DERMATITIS ATOPIC
     Dosage: 600 MG, 1X
     Route: 058
     Dates: start: 20210414, end: 20210414

REACTIONS (5)
  - Arthralgia [Unknown]
  - Eye pruritus [Recovered/Resolved]
  - Muscle spasms [Unknown]
  - Insomnia [Unknown]
  - Myalgia [Unknown]

NARRATIVE: CASE EVENT DATE: 20210414
